FAERS Safety Report 22013035 (Version 2)
Quarter: 2023Q1

REPORT INFORMATION
  Report Type: Report from Study
  Country: CN (occurrence: CN)
  Receive Date: 20230220
  Receipt Date: 20230302
  Transmission Date: 20230418
  Serious: Yes (Hospitalization)
  Sender: FDA-Public Use
  Company Number: CN-PFIZER INC-PV202300028930

PATIENT
  Age: 54 Year
  Sex: Male
  Weight: 59 kg

DRUGS (10)
  1. CAMRELIZUMAB [Suspect]
     Active Substance: CAMRELIZUMAB
     Indication: Hepatic cancer
     Dosage: 200 MG, EVERY 3 WEEKS, ROUTE: INTRAVENOUS INFUSION
     Route: 042
     Dates: start: 20221130, end: 20230103
  2. APATINIB [Suspect]
     Active Substance: APATINIB
     Indication: Hepatic cancer
     Dosage: 250 MG, 1X/DAY
     Route: 048
     Dates: start: 20230104, end: 20230105
  3. EPIRUBICIN HYDROCHLORIDE [Concomitant]
     Active Substance: EPIRUBICIN HYDROCHLORIDE
     Indication: Hepatic cancer
     Dosage: 40 MG, AS NEEDED, ROUTE: TRANSCATHETER INFUSION
     Dates: start: 20221011, end: 20230105
  4. ADEMETIONINE [Concomitant]
     Active Substance: ADEMETIONINE
     Indication: Hepatic cirrhosis
     Dosage: 1.0 G, 1X/DAY, ROUTE: INTRAVENOUS INFUSION
     Route: 042
     Dates: start: 20230105, end: 20230111
  5. MAGNESIUM ISOGLYCYRRHIZINATE [Concomitant]
     Active Substance: MAGNESIUM ISOGLYCYRRHIZINATE
     Indication: Hepatic cirrhosis
     Dosage: 100 MG, 1X/DAY, ROUTE: INTRAVENOUS INFUSION
     Route: 042
     Dates: start: 20230105, end: 20230111
  6. NIFEDIPINE [Concomitant]
     Active Substance: NIFEDIPINE
     Indication: Hypertension
     Dosage: 10 MG, IMMEDIATE EXECUTION
     Route: 048
     Dates: start: 20230106, end: 20230106
  7. CONCENTRATE OF TRACE ELEMENTS [Concomitant]
     Indication: Supplementation therapy
     Dosage: 40 ML, 1X/DAY, ROUTE: INTRAVENOUS INFUSION
     Route: 042
     Dates: start: 20230105, end: 20230108
  8. LACTULOSE [Concomitant]
     Active Substance: LACTULOSE
     Indication: Constipation
     Dosage: 90 ML, IMMEDIATE EXECUTION
     Route: 048
     Dates: start: 20230109, end: 20230109
  9. ESOMEPRAZOLE SODIUM [Concomitant]
     Active Substance: ESOMEPRAZOLE SODIUM
     Indication: Haematochezia
     Dosage: 40 MG, IMMEDIATE EXECUTION, ROUTE: INTRAVENOUS INFUSION
     Route: 042
     Dates: start: 20230112, end: 20230112
  10. GRANULOCYTE COLONY-STIMULATING FACTOR NOS [Concomitant]
     Active Substance: GRANULOCYTE COLONY-STIMULATING FACTOR NOS
     Indication: White blood cell count decreased
     Dosage: 300 UG, 1X/DAY
     Route: 058
     Dates: start: 20230104, end: 20230105

REACTIONS (2)
  - Abdominal infection [Recovered/Resolved]
  - Hernia [Recovering/Resolving]

NARRATIVE: CASE EVENT DATE: 20230109
